FAERS Safety Report 8487390-8 (Version None)
Quarter: 2012Q2

REPORT INFORMATION
  Report Type: 
  Country: None (occurrence: None)
  Receive Date: 20120628
  Receipt Date: 20120628
  Transmission Date: 20120825
  Serious: No
  Sender: FDA-Public Use
  Company Number: None

PATIENT
  Age: 49 Year
  Sex: Female

DRUGS (1)
  1. ENBREL [Suspect]
     Indication: PSORIATIC ARTHROPATHY
     Dosage: 25MG BIW SUBCUTANEOUSLY
     Route: 058
     Dates: start: 20120412, end: 20120607

REACTIONS (2)
  - INJECTION SITE ULCER [None]
  - SWELLING [None]
